FAERS Safety Report 5156709-8 (Version None)
Quarter: 2006Q4

REPORT INFORMATION
  Report Type: 
  Country: None (occurrence: None)
  Receive Date: 20061115
  Receipt Date: 20061031
  Transmission Date: 20070319
  Serious: Yes (Life-Threatening, Hospitalization, Other)
  Sender: FDA-Public Use
  Company Number: 2006RR-04321

PATIENT
  Age: 31 Year
  Sex: Female
  Weight: 62 kg

DRUGS (6)
  1. IBUPROFEN [Suspect]
     Indication: ANALGESIC EFFECT
     Dosage: TID, ORAL
     Route: 048
     Dates: start: 20060802, end: 20060814
  2. PREDNISOLONE [Suspect]
     Indication: HEPATITIS
     Dosage: 40 MG, QD, ORAL
     Route: 048
     Dates: start: 20060612, end: 20060618
  3. FOLIC ACID [Concomitant]
  4. LACTULOSE [Concomitant]
  5. SPIRONOLACTONE [Concomitant]
     Dates: start: 20060620, end: 20060818
  6. THIAMINE [Concomitant]
     Dates: start: 20060605, end: 20060818

REACTIONS (4)
  - DUODENAL ULCER [None]
  - ENCEPHALOPATHY [None]
  - HAEMATEMESIS [None]
  - MELAENA [None]
